FAERS Safety Report 6742497-8 (Version None)
Quarter: 2010Q2

REPORT INFORMATION
  Report Type: 
  Country: None (occurrence: None)
  Receive Date: 20100526
  Receipt Date: 20100519
  Transmission Date: 20101027
  Serious: Yes (Hospitalization)
  Sender: FDA-Public Use
  Company Number: GB-ROCHE-703066

PATIENT
  Sex: Male
  Weight: 72 kg

DRUGS (6)
  1. CAPECITABINE [Suspect]
     Indication: COLON CANCER
     Dosage: DATE MOST RECENT DOSE GIVEN: 29 APRIL 2010.  CYCLE COMPLETED
     Route: 048
     Dates: start: 20091113, end: 20100429
  2. BEVACIZUMAB [Suspect]
     Indication: COLON CANCER
     Dosage: DATE MOST RECENT DOSE GIVEN: 15 ARPIL 2010.  CURRENT CYCLE: 8
     Route: 042
     Dates: start: 20091113
  3. AMLODIPINE [Concomitant]
     Route: 048
  4. BENDROFLUMETHIAZIDE [Concomitant]
     Route: 048
  5. PAROXETINE HCL [Concomitant]
     Indication: ANTIDEPRESSANT THERAPY
     Route: 048
  6. PYRIDOXINE HCL [Concomitant]
     Indication: VITAMIN SUPPLEMENTATION
     Route: 048

REACTIONS (2)
  - ABDOMINAL PAIN [None]
  - NEPHROLITHIASIS [None]
